FAERS Safety Report 11342207 (Version 1)
Quarter: 2015Q3

REPORT INFORMATION
  Report Type: Spontaneous
  Country: US (occurrence: US)
  Receive Date: 20150805
  Receipt Date: 20150805
  Transmission Date: 20151125
  Serious: No
  Sender: FDA-Public Use
  Company Number: US-ASTRAZENECA-2015SE73493

PATIENT
  Sex: Female
  Weight: 59 kg

DRUGS (14)
  1. EPIPEN [Concomitant]
     Active Substance: EPINEPHRINE
     Indication: FOOD ALLERGY
  2. SINGULAIR [Concomitant]
     Active Substance: MONTELUKAST SODIUM
     Indication: LUNG DISORDER
  3. FOLIC ACID. [Concomitant]
     Active Substance: FOLIC ACID
     Route: 048
  4. OMEPRAZOLE. [Suspect]
     Active Substance: OMEPRAZOLE
     Route: 048
  5. DALIRESP [Suspect]
     Active Substance: ROFLUMILAST
     Indication: EMPHYSEMA
     Route: 048
  6. ALBUTEROL. [Concomitant]
     Active Substance: ALBUTEROL
     Indication: LUNG DISORDER
     Dosage: SIX TIMES A DAY
     Route: 055
  7. MUCINEX [Concomitant]
     Active Substance: GUAIFENESIN
     Indication: PRODUCTIVE COUGH
  8. SYMBICORT [Suspect]
     Active Substance: BUDESONIDE\FORMOTEROL FUMARATE DIHYDRATE
     Indication: CHRONIC OBSTRUCTIVE PULMONARY DISEASE
     Dosage: 160/4.5 MCG 2 PUFFS;  TWO TIMES A DAY
     Route: 055
  9. PROAIR HFA [Concomitant]
     Active Substance: ALBUTEROL SULFATE
     Indication: EMERGENCY CARE
     Dosage: AS REQUIRED
     Route: 055
  10. VITAMIN B1 [Concomitant]
     Active Substance: THIAMINE HYDROCHLORIDE
     Route: 048
  11. DALIRESP [Suspect]
     Active Substance: ROFLUMILAST
     Indication: EMPHYSEMA
     Route: 048
     Dates: start: 2014
  12. FLONASE [Concomitant]
     Active Substance: FLUTICASONE PROPIONATE
     Dosage: AS REQUIRED
  13. CLINIPRIL [Concomitant]
     Indication: HYPERTENSION
     Route: 048
  14. MULTIVITAMIN [Concomitant]
     Active Substance: VITAMINS

REACTIONS (7)
  - Drug ineffective [Unknown]
  - Hypertension [Unknown]
  - Gastrooesophageal reflux disease [Unknown]
  - Osteoporosis [Unknown]
  - Productive cough [Unknown]
  - Sinusitis [Unknown]
  - Drug dose omission [Unknown]
